FAERS Safety Report 5753208-7 (Version None)
Quarter: 2008Q2

REPORT INFORMATION
  Report Type: 
  Country: None (occurrence: None)
  Receive Date: 20080530
  Receipt Date: 20080219
  Transmission Date: 20081010
  Serious: No
  Sender: FDA-Public Use
  Company Number: US-KINGPHARMUSA00001-K200800222

PATIENT

DRUGS (1)
  1. CORTISPORIN OTIC SOLUTION STERILE [Suspect]
     Indication: EAR INFECTION
     Dosage: UNK, BID
     Route: 001
     Dates: start: 20080215, end: 20080217

REACTIONS (2)
  - RASH [None]
  - URTICARIA [None]
